FAERS Safety Report 7356173-4 (Version None)
Quarter: 2011Q1

REPORT INFORMATION
  Report Type: 
  Country: None (occurrence: None)
  Receive Date: 20110316
  Receipt Date: 20110311
  Transmission Date: 20110831
  Serious: Yes (Other)
  Sender: FDA-Public Use
  Company Number: US-PFIZER INC-2011054589

PATIENT
  Sex: Male
  Weight: 90.703 kg

DRUGS (1)
  1. PREPARATION H [Suspect]
     Indication: PROCTALGIA
     Dosage: UNK, DAILY
     Dates: start: 20110201, end: 20110310

REACTIONS (2)
  - DRUG INEFFECTIVE [None]
  - RECTAL HAEMORRHAGE [None]
